FAERS Safety Report 7792805-4 (Version None)
Quarter: 2011Q4

REPORT INFORMATION
  Report Type: 
  Country: None (occurrence: None)
  Receive Date: 20111003
  Receipt Date: 20110930
  Transmission Date: 20120403
  Serious: Yes (Hospitalization)
  Sender: FDA-Public Use
  Company Number: US-GLAXOSMITHKLINE-A0883914A

PATIENT
  Age: 58 Year
  Sex: Male

DRUGS (10)
  1. AVANDIA [Suspect]
     Indication: DIABETES MELLITUS
     Dosage: 8MG PER DAY
     Route: 048
     Dates: start: 20050101, end: 20080101
  2. ATENOLOL [Concomitant]
  3. LORATADINE [Concomitant]
  4. VARDENAFIL [Concomitant]
  5. FLUNISOLIDE [Concomitant]
  6. QUETIAPINE [Concomitant]
  7. DOXAZOSIN MESYLATE [Concomitant]
  8. CITALOPRAM HYDROBROMIDE [Concomitant]
  9. GLIPIZIDE [Concomitant]
  10. NIFEDIPINE [Concomitant]

REACTIONS (3)
  - MYOCARDIAL INFARCTION [None]
  - CARDIAC FAILURE CONGESTIVE [None]
  - CARDIAC DISORDER [None]
